FAERS Safety Report 8160607-5 (Version None)
Quarter: 2012Q1

REPORT INFORMATION
  Report Type: 
  Country: None (occurrence: None)
  Receive Date: 20120223
  Receipt Date: 20120213
  Transmission Date: 20120608
  Serious: Yes (Other)
  Sender: FDA-Public Use
  Company Number: US-ALLERGAN-1202098US

PATIENT
  Age: 73 Year
  Sex: Female

DRUGS (1)
  1. REFRESH TEARS [Suspect]
     Indication: DRY EYE
     Dosage: 1 GTT, SINGLE
     Route: 047
     Dates: start: 20120210, end: 20120210

REACTIONS (6)
  - DYSPNOEA [None]
  - THROAT TIGHTNESS [None]
  - URTICARIA [None]
  - HYPERSENSITIVITY [None]
  - BLINDNESS TRANSIENT [None]
  - VISION BLURRED [None]
